FAERS Safety Report 4874037-2 (Version None)
Quarter: 2006Q1

REPORT INFORMATION
  Report Type: 
  Country: None (occurrence: None)
  Receive Date: 20060106
  Receipt Date: 20051227
  Transmission Date: 20060701
  Serious: Yes (Hospitalization)
  Sender: FDA-Public Use
  Company Number: FR-BRISTOL-MYERS SQUIBB COMPANY-13236096

PATIENT
  Age: 51 Year
  Sex: Female

DRUGS (3)
  1. ENDOXAN [Suspect]
     Indication: DRUG USE FOR UNKNOWN INDICATION
     Route: 042
     Dates: start: 20051207, end: 20051207
  2. CARBOPLATIN [Suspect]
     Route: 042
     Dates: start: 20051207, end: 20051207
  3. HEXABRIX [Suspect]
     Route: 042
     Dates: start: 20051207, end: 20051207

REACTIONS (3)
  - ANAPHYLACTIC SHOCK [None]
  - RASH [None]
  - SNEEZING [None]
